FAERS Safety Report 19860438 (Version 1)
Quarter: 2021Q3

REPORT INFORMATION
  Report Type: Spontaneous
  Country: US (occurrence: US)
  Receive Date: 20210921
  Receipt Date: 20210921
  Transmission Date: 20211014
  Serious: Yes (Other)
  Sender: FDA-Public Use
  Company Number: None

PATIENT
  Age: 41 Year
  Sex: Female

DRUGS (1)
  1. REGEN?COV [Suspect]
     Active Substance: CASIRIVIMAB\IMDEVIMAB
     Indication: COVID-19
     Dosage: ?          OTHER FREQUENCY:ONCE;?
     Route: 058
     Dates: start: 20210916, end: 20210916

REACTIONS (11)
  - Somnolence [None]
  - Wheezing [None]
  - Drug hypersensitivity [None]
  - Headache [None]
  - Chest discomfort [None]
  - Pain [None]
  - Swelling face [None]
  - Hypoaesthesia oral [None]
  - Urticaria [None]
  - Anaphylactic reaction [None]
  - Hypoaesthesia [None]

NARRATIVE: CASE EVENT DATE: 20210916
